FAERS Safety Report 11953900 (Version 1)
Quarter: 2016Q1

REPORT INFORMATION
  Report Type: Spontaneous
  Country: US (occurrence: US)
  Receive Date: 20160126
  Receipt Date: 20160126
  Transmission Date: 20160526
  Serious: No
  Sender: FDA-Public Use
  Company Number: US-PFIZER INC-2016021565

PATIENT
  Age: 60 Year
  Sex: Female
  Weight: 66 kg

DRUGS (1)
  1. DUAVEE [Suspect]
     Active Substance: BAZEDOXIFENE ACETATE\ESTROGENS, CONJUGATED
     Indication: POSTMENOPAUSAL HAEMORRHAGE
     Dates: start: 201503

REACTIONS (2)
  - Product use issue [Unknown]
  - Bone resorption test abnormal [Unknown]

NARRATIVE: CASE EVENT DATE: 201503
